FAERS Safety Report 8825642 (Version 1)
Quarter: 2012Q4

REPORT INFORMATION
  Report Type: 
  Country: US (occurrence: US)
  Receive Date: 20121004
  Receipt Date: 20121004
  Transmission Date: 20130627
  Serious: No
  Sender: FDA-Public Use
  Company Number: US-ASTRAZENECA-2012SE75563

PATIENT
  Age: 45 Year
  Sex: Female
  Weight: 59 kg

DRUGS (3)
  1. CRESTOR [Suspect]
     Indication: BLOOD CHOLESTEROL
     Route: 048
     Dates: start: 20120921
  2. TIROSINT [Concomitant]
     Indication: THYROID DISORDER
  3. CALCITRIOL [Concomitant]
     Indication: PARATHYROID DISORDER

REACTIONS (1)
  - Abdominal distension [Not Recovered/Not Resolved]
